APPROVED DRUG PRODUCT: MIRTAZAPINE
Active Ingredient: MIRTAZAPINE
Strength: 7.5MG
Dosage Form/Route: TABLET;ORAL
Application: A076921 | Product #001 | TE Code: AB
Applicant: AUROBINDO PHARMA LTD
Approved: Oct 22, 2004 | RLD: No | RS: No | Type: RX